FAERS Safety Report 17740969 (Version 2)
Quarter: 2020Q2

REPORT INFORMATION
  Report Type: Spontaneous
  Country: US (occurrence: US)
  Receive Date: 20200504
  Receipt Date: 20200611
  Transmission Date: 20200714
  Serious: Yes (Other)
  Sender: FDA-Public Use
  Company Number: US-PFIZER INC-2020175770

PATIENT
  Age: 53 Year
  Sex: Female
  Weight: 58.06 kg

DRUGS (3)
  1. PREMARIN [Suspect]
     Active Substance: ESTROGENS, CONJUGATED
     Indication: BONE DISORDER
     Dosage: 0.3 MG, 2X/DAY, (0.3 MG TABLET BY MOUTH TWO TIMES A DAY)
     Route: 048
     Dates: start: 1994
  2. PREMARIN [Suspect]
     Active Substance: ESTROGENS, CONJUGATED
     Indication: CARDIAC DISORDER
     Dosage: 0.3 MG, 1X/DAY, (SHE WENT DOWN TO ONE TIME A DAY)
  3. PREMARIN [Suspect]
     Active Substance: ESTROGENS, CONJUGATED
     Dosage: 0.3 MG, ALTERNATE DAY, (TAKING ONE TABLET BY MOUTH EVERY OTHER DAY)
     Route: 048
     Dates: start: 201911

REACTIONS (7)
  - Headache [Unknown]
  - Off label use [Unknown]
  - Pain [Unknown]
  - Product use in unapproved indication [Unknown]
  - Body height abnormal [Unknown]
  - Intentional product misuse [Unknown]
  - Deafness [Unknown]

NARRATIVE: CASE EVENT DATE: 1994
